FAERS Safety Report 19908795 (Version 3)
Quarter: 2022Q1

REPORT INFORMATION
  Report Type: Spontaneous
  Country: JP (occurrence: JP)
  Receive Date: 20211001
  Receipt Date: 20220311
  Transmission Date: 20220424
  Serious: Yes (Hospitalization, Other)
  Sender: FDA-Public Use
  Company Number: JP-TEIJIN-202102644_FE_P_1

PATIENT
  Age: 48 Year
  Sex: Male

DRUGS (3)
  1. FEBUXOSTAT [Interacting]
     Active Substance: FEBUXOSTAT
     Indication: Hyperuricaemia
     Dosage: UNK
     Route: 048
  2. VIDARABINE [Interacting]
     Active Substance: VIDARABINE
     Indication: Product used for unknown indication
     Dosage: UNK
     Route: 041
     Dates: end: 202102
  3. VIDARABINE [Interacting]
     Active Substance: VIDARABINE
     Dosage: UNK
     Route: 041
     Dates: start: 202102, end: 2021

REACTIONS (3)
  - Toxic encephalopathy [Recovering/Resolving]
  - Drug interaction [Recovering/Resolving]
  - Nephropathy [Unknown]

NARRATIVE: CASE EVENT DATE: 20210101
